FAERS Safety Report 4946179-4 (Version None)
Quarter: 2006Q1

REPORT INFORMATION
  Report Type: 
  Country: None (occurrence: None)
  Receive Date: 20060118
  Receipt Date: 20050415
  Transmission Date: 20060701
  Serious: Yes (Hospitalization)
  Sender: FDA-Public Use
  Company Number: US-JNJFOC-20050304996

PATIENT
  Age: 53 Year
  Sex: Female

DRUGS (1)
  1. DOXIL [Suspect]
     Indication: OVARIAN CANCER
     Dosage: 57 MG, INTRAVENOUS
     Route: 042
     Dates: start: 20050315

REACTIONS (2)
  - COMA [None]
  - INFUSION RELATED REACTION [None]
